FAERS Safety Report 5354384-0 (Version None)
Quarter: 2007Q2

REPORT INFORMATION
  Report Type: 
  Country: None (occurrence: None)
  Receive Date: 20070521
  Receipt Date: 20070409
  Transmission Date: 20071010
  Serious: No
  Sender: FDA-Public Use
  Company Number: WAES 0704USA01323

PATIENT
  Age: 68 Year
  Sex: Male

DRUGS (2)
  1. JANUVIA [Suspect]
     Indication: DIABETES MELLITUS INSULIN-DEPENDENT
     Dosage: 100 MG/DAILY/PO
     Route: 048
     Dates: start: 20070109
  2. [THERAPY UNSPECIFIED] [Concomitant]

REACTIONS (2)
  - BLOOD POTASSIUM INCREASED [None]
  - OFF LABEL USE [None]
